FAERS Safety Report 5022620-6 (Version None)
Quarter: 2006Q2

REPORT INFORMATION
  Report Type: 
  Country: None (occurrence: None)
  Receive Date: 20060605
  Receipt Date: 20060524
  Transmission Date: 20061013
  Serious: Yes (Other)
  Sender: FDA-Public Use
  Company Number: 2006067748

PATIENT
  Age: 86 Year
  Sex: Male

DRUGS (2)
  1. TOLTERODINE TARTRATE [Suspect]
     Indication: ILL-DEFINED DISORDER
     Dosage: ORAL
     Route: 048
  2. ALPHA-ADRENOCEPTOR BLOCKING AGENTS (ALPHA-ADRENOCEPTOR BLOCKING AGENTS [Concomitant]

REACTIONS (1)
  - ATRIAL FIBRILLATION [None]
